FAERS Safety Report 20430755 (Version 1)
Quarter: 2022Q1

REPORT INFORMATION
  Report Type: Report from Study
  Country: FR (occurrence: FR)
  Receive Date: 20220204
  Receipt Date: 20220204
  Transmission Date: 20220423
  Serious: Yes (Hospitalization)
  Sender: FDA-Public Use
  Company Number: FR-SERVIER-S21003843

PATIENT

DRUGS (6)
  1. PEGASPARGASE [Suspect]
     Active Substance: PEGASPARGASE
     Indication: Acute lymphocytic leukaemia
     Dosage: 825 IU, QD, D64
     Route: 042
     Dates: start: 20201207
  2. TN UNSPECIFIED [Concomitant]
     Indication: Acute lymphocytic leukaemia
     Dosage: 0.9 MG, D1, D8, D29, D36, D57, D64
     Route: 042
     Dates: start: 20201130
  3. TN UNSPECIFIED [Concomitant]
     Indication: Acute lymphocytic leukaemia
     Dosage: 4 MG, D1 TO D15, D29 TO D33, D57 TO D61
     Route: 048
     Dates: start: 20201130
  4. TN UNSPECIFIED [Concomitant]
     Indication: Acute lymphocytic leukaemia
     Dosage: 32 MG, D1 TO D21, D29 TO D49, D57 TO D77
     Route: 048
     Dates: start: 20201130, end: 20210215
  5. TN UNSPECIFIED [Concomitant]
     Indication: Acute lymphocytic leukaemia
     Dosage: 16 MG, D8, D15, D22, D36, D43, D50, D64
     Route: 048
     Dates: start: 20201207, end: 20210215
  6. TN UNSPECIFIED [Concomitant]
     Dosage: 10 MG, D58
     Route: 037
     Dates: start: 20210130

REACTIONS (1)
  - Product contamination microbial [Recovering/Resolving]

NARRATIVE: CASE EVENT DATE: 20210211
